FAERS Safety Report 14906918 (Version 1)
Quarter: 2018Q2

REPORT INFORMATION
  Report Type: Report from Study
  Country: US (occurrence: US)
  Receive Date: 20180517
  Receipt Date: 20180517
  Transmission Date: 20180711
  Serious: Yes (Other)
  Sender: FDA-Public Use
  Company Number: US-ARIAD-2015US005706

PATIENT
  Age: 33 Year
  Sex: Male

DRUGS (3)
  1. PONATINIB [Suspect]
     Active Substance: PONATINIB
     Dosage: 30 MG, QD
     Route: 048
  2. PONATINIB [Suspect]
     Active Substance: PONATINIB
     Dosage: 30 MG, BID
     Route: 048
  3. PONATINIB [Suspect]
     Active Substance: PONATINIB
     Indication: CHRONIC MYELOID LEUKAEMIA
     Dosage: 15 MG, QOD
     Route: 048
     Dates: start: 201405, end: 201502

REACTIONS (14)
  - Thrombocytopenia [Unknown]
  - Lung infiltration [Unknown]
  - Graft versus host disease [Unknown]
  - Hepatic enzyme increased [Not Recovered/Not Resolved]
  - Pneumonia fungal [Unknown]
  - Limb mass [Recovered/Resolved]
  - Weight decreased [Unknown]
  - Extra dose administered [Unknown]
  - Ascites [Unknown]
  - Hepatomegaly [Unknown]
  - Pain [Unknown]
  - Dry skin [Unknown]
  - Pyrexia [Unknown]
  - Decreased appetite [Unknown]

NARRATIVE: CASE EVENT DATE: 20151124
